FAERS Safety Report 8257992-2 (Version None)
Quarter: 2012Q2

REPORT INFORMATION
  Report Type: 
  Country: None (occurrence: None)
  Receive Date: 20120404
  Receipt Date: 20120328
  Transmission Date: 20120825
  Serious: Yes (Other)
  Sender: FDA-Public Use
  Company Number: JP-JNJFOC-20120312328

PATIENT
  Age: 49 Year
  Sex: Male

DRUGS (18)
  1. DEZOLAM [Concomitant]
     Dosage: 1 MG X 1 PER 1 DAY
     Route: 048
     Dates: start: 20120203, end: 20120226
  2. ZOLOFT [Concomitant]
     Dosage: 75 MG X 1 PER 1 DAY
     Route: 048
  3. CYMBALTA [Concomitant]
     Dosage: 60 MG X 1 PER 1 DAY
     Route: 048
     Dates: start: 20120213
  4. CELEBREX [Concomitant]
     Dosage: 300 MG X 1 PER 1 DAY
     Route: 048
     Dates: start: 20120213
  5. TRAMADOL HYDROCHLORIDE AND ACETAMINOPHEN [Suspect]
     Indication: PAIN
     Dosage: 4 DF X 1 PER 1 DAY
     Route: 048
     Dates: start: 20120220, end: 20120314
  6. LENDORMIN D [Concomitant]
     Indication: INSOMNIA
     Dosage: 0.5 MG X 1 PER 1 DAY
     Route: 048
  7. TASMOLIN [Concomitant]
     Dosage: P.R.N.
     Route: 048
  8. LYRICA [Concomitant]
     Dosage: 2 DF X 1 PER 1 DAY
     Route: 048
     Dates: start: 20120203
  9. LANSOPRAZOLE [Concomitant]
     Dosage: 10 MG X 1 PER 1 DAY
     Route: 048
     Dates: start: 20120203, end: 20120226
  10. COLCHICINE [Concomitant]
     Dosage: 1 MG X 1 PER 1 DAY
     Route: 048
     Dates: end: 20120226
  11. LOPERAMIDE HCL [Concomitant]
     Indication: DIARRHOEA
     Dosage: 1 MG X 1 PER 1 DAY (P.R.N.)
     Route: 048
     Dates: end: 20120315
  12. TRAMADOL HYDROCHLORIDE AND ACETAMINOPHEN [Suspect]
     Dosage: 4 DF X 1 PER 1 DAY
     Route: 048
     Dates: start: 20111220, end: 20120119
  13. LEXAPRO [Concomitant]
     Dosage: 20 MG X 1 PER 1 DAY
     Route: 048
  14. ABILIFY [Concomitant]
     Dosage: 12 ML X 1 PER 1 DAY
     Route: 048
  15. ZYPREXA [Concomitant]
     Dosage: 10 MG X 1 PER 1 DAY
     Route: 048
     Dates: end: 20120226
  16. SEROQUEL [Concomitant]
     Dosage: 100 MG X 1 PER 1 DAY
     Route: 048
  17. HALCION [Concomitant]
     Indication: INSOMNIA
     Dosage: 0.5 MG X 1 PER 1 DAY (P.R.N)
     Route: 048
  18. ESTAZOLAM [Concomitant]
     Indication: INSOMNIA
     Dosage: 4 MG X 1 PER 1 DAY (P.R.N.)
     Route: 048

REACTIONS (3)
  - LOSS OF CONSCIOUSNESS [None]
  - ROAD TRAFFIC ACCIDENT [None]
  - TREATMENT NONCOMPLIANCE [None]
